FAERS Safety Report 11524841 (Version 1)
Quarter: 2015Q3

REPORT INFORMATION
  Report Type: Spontaneous
  Country: US (occurrence: US)
  Receive Date: 20150918
  Receipt Date: 20150918
  Transmission Date: 20151125
  Serious: No
  Sender: FDA-Public Use
  Company Number: US-ROCHE-748125

PATIENT
  Age: 44 Year
  Sex: Male
  Weight: 72.7 kg

DRUGS (10)
  1. PEGASYS [Suspect]
     Active Substance: PEGINTERFERON ALFA-2A
     Indication: HEPATITIS C
     Route: 058
  2. ZOLOFT [Concomitant]
     Active Substance: SERTRALINE HYDROCHLORIDE
     Route: 065
  3. COMPAZINE [Concomitant]
     Active Substance: PROCHLORPERAZINE MALEATE
     Route: 065
  4. AMITRIPTYLINE [Concomitant]
     Active Substance: AMITRIPTYLINE
     Route: 065
  5. MARIJUANA [Concomitant]
     Active Substance: CANNABIS SATIVA SUBSP. INDICA TOP
     Route: 065
  6. ALPRAZOLAM. [Concomitant]
     Active Substance: ALPRAZOLAM
     Route: 065
  7. IRON [Concomitant]
     Active Substance: IRON
     Route: 065
  8. CALCIUM [Concomitant]
     Active Substance: CALCIUM
     Route: 065
  9. RIBAVIRIN. [Suspect]
     Active Substance: RIBAVIRIN
     Indication: HEPATITIS C
     Route: 048
  10. XANAX [Concomitant]
     Active Substance: ALPRAZOLAM
     Route: 065

REACTIONS (3)
  - Red blood cell count decreased [Recovering/Resolving]
  - White blood cell count decreased [Recovering/Resolving]
  - Anaemia [Unknown]

NARRATIVE: CASE EVENT DATE: 201008
